FAERS Safety Report 25298194 (Version 1)
Quarter: 2025Q2

REPORT INFORMATION
  Report Type: Spontaneous
  Country: US (occurrence: US)
  Receive Date: 20250512
  Receipt Date: 20250512
  Transmission Date: 20250716
  Serious: No
  Sender: UCB
  Company Number: US-UCBSA-2024040878

PATIENT
  Age: 46 Year
  Sex: Female

DRUGS (1)
  1. CIMZIA [Suspect]
     Active Substance: CERTOLIZUMAB PEGOL
     Indication: Crohn^s disease
     Dosage: 200 MILLIGRAM, EV 2 WEEKS(QOW)
     Route: 058
     Dates: start: 201802

REACTIONS (6)
  - Sinusitis [Unknown]
  - Cockroach allergy [Unknown]
  - Mite allergy [Unknown]
  - Allergy to plants [Unknown]
  - Seasonal allergy [Unknown]
  - Off label use [Unknown]

NARRATIVE: CASE EVENT DATE: 20180201
